FAERS Safety Report 19659957 (Version 1)
Quarter: 2021Q3

REPORT INFORMATION
  Report Type: Spontaneous
  Country: CA (occurrence: CA)
  Receive Date: 20210805
  Receipt Date: 20210805
  Transmission Date: 20211014
  Serious: Yes (Other)
  Sender: FDA-Public Use
  Company Number: CA-ROCHE-2881075

PATIENT
  Sex: Male

DRUGS (3)
  1. ALECENSARO [Suspect]
     Active Substance: ALECTINIB
     Indication: LUNG NEOPLASM MALIGNANT
     Route: 065
     Dates: start: 20190301
  2. ALECENSARO [Suspect]
     Active Substance: ALECTINIB
     Route: 065
     Dates: start: 201910
  3. ALECENSARO [Suspect]
     Active Substance: ALECTINIB
     Route: 065

REACTIONS (11)
  - Drug interaction [Unknown]
  - Atrial fibrillation [Unknown]
  - Liver disorder [Unknown]
  - Photosensitivity reaction [Unknown]
  - Oedema peripheral [Unknown]
  - Fluid retention [Unknown]
  - Photophobia [Unknown]
  - Bradycardia [Unknown]
  - Haemoglobin decreased [Unknown]
  - Muscular weakness [Unknown]
  - Weight increased [Unknown]
